FAERS Safety Report 20570329 (Version 2)
Quarter: 2022Q1

REPORT INFORMATION
  Report Type: Other
  Country: DE (occurrence: DE)
  Receive Date: 20220309
  Receipt Date: 20220324
  Transmission Date: 20220423
  Serious: Yes (Hospitalization, Other)
  Sender: FDA-Public Use
  Company Number: None

PATIENT
  Age: 83 Year
  Sex: Male

DRUGS (15)
  1. FINASTERIDE [Suspect]
     Active Substance: FINASTERIDE
     Indication: Product used for unknown indication
     Dosage: UNK UNK, QD (1-0-0)
     Route: 065
  2. SIMVASTATIN [Suspect]
     Active Substance: SIMVASTATIN
     Indication: Product used for unknown indication
     Dosage: UNK UNK, QD (0-0-1)
     Route: 065
  3. TAMSULOSIN [Suspect]
     Active Substance: TAMSULOSIN
     Indication: Product used for unknown indication
     Dosage: UNK UNK, QD (0-0-1)
     Route: 065
  4. ALLOPURINOL [Suspect]
     Active Substance: ALLOPURINOL
     Indication: Product used for unknown indication
     Dosage: UNK UNK, QD (0-0-1)
     Route: 065
     Dates: end: 20220205
  5. BUSERELIN [Suspect]
     Active Substance: BUSERELIN
     Indication: Product used for unknown indication
     Dosage: 9.5 MG
     Route: 058
     Dates: start: 20220128
  6. BICALUTAMIDE [Suspect]
     Active Substance: BICALUTAMIDE
     Indication: Product used for unknown indication
     Dosage: UNK 20 DAYS UNTIL 2022-02-01
     Route: 065
     Dates: end: 20220201
  7. FELODIPINE [Concomitant]
     Active Substance: FELODIPINE
     Indication: Product used for unknown indication
     Dosage: 0.5 DOSAGE FORM, QD (0-0-0.5 )
     Route: 065
  8. CYCLOSPORINE [Concomitant]
     Active Substance: CYCLOSPORINE
     Indication: Product used for unknown indication
     Dosage: UNK UNK, BID (1-0-1 )
     Route: 065
  9. Novalgin 500 mg [Concomitant]
     Indication: Product used for unknown indication
     Dosage: UNK UNK, TID (1-1-1 )
     Route: 065
  10. BISOPROLOL [Concomitant]
     Active Substance: BISOPROLOL
     Indication: Product used for unknown indication
     Dosage: UNK UNK, BID (1-0-1)
     Route: 065
  11. MARCUMAR [Concomitant]
     Active Substance: PHENPROCOUMON
     Indication: Product used for unknown indication
     Dosage: UNK UNK, QD 1-0-0
     Route: 065
  12. Dekristol 20000 IE [Concomitant]
     Indication: Product used for unknown indication
     Dosage: 20000 INTERNATIONAL UNIT ONCE A WEEK
     Route: 065
  13. PREDNISOLONE [Concomitant]
     Active Substance: PREDNISOLONE
     Indication: Product used for unknown indication
     Dosage: UNK UNK, QD  (1-0-0)
     Route: 065
  14. TORSEMIDE [Concomitant]
     Active Substance: TORSEMIDE
     Indication: Product used for unknown indication
     Dosage: UNK UNK, BID (1-1-0)
     Route: 065
  15. EPO 3000 IE [Concomitant]
     Indication: Product used for unknown indication
     Dosage: 3000 INTERNATIONAL UNIT ONCE A WEEK
     Route: 065

REACTIONS (8)
  - Muscular weakness [Not Recovered/Not Resolved]
  - Product prescribing error [Unknown]
  - Pyrexia [Recovered/Resolved]
  - Blood lactate dehydrogenase increased [Unknown]
  - Aspartate aminotransferase increased [Unknown]
  - Blood creatine phosphokinase increased [Unknown]
  - Gamma-glutamyltransferase increased [Unknown]
  - Alanine aminotransferase increased [Unknown]

NARRATIVE: CASE EVENT DATE: 20220128
